FAERS Safety Report 21171617 (Version 1)
Quarter: 2022Q3

REPORT INFORMATION
  Report Type: Spontaneous
  Country: US (occurrence: None)
  Receive Date: 20220804
  Receipt Date: 20220804
  Transmission Date: 20221026
  Serious: No
  Sender: FDA-Public Use
  Company Number: US-Hikma Pharmaceuticals USA Inc.-US-H14001-21-03611

PATIENT
  Sex: Female

DRUGS (1)
  1. DEXAMETHASONE [Suspect]
     Active Substance: DEXAMETHASONE
     Indication: Product used for unknown indication
     Dosage: ONE-HALF OF 0.5 MG TABLET, ONCE A DAY AT NIGHT
     Route: 048

REACTIONS (3)
  - Rash pruritic [Unknown]
  - Scar [Unknown]
  - Off label use [Unknown]
